FAERS Safety Report 5466035-5 (Version None)
Quarter: 2007Q3

REPORT INFORMATION
  Report Type: 
  Country: None (occurrence: None)
  Receive Date: 20070919
  Receipt Date: 20070904
  Transmission Date: 20080115
  Serious: Yes (Life-Threatening)
  Sender: FDA-Public Use
  Company Number: 2007BM000113

PATIENT
  Age: 8 Year
  Sex: Female
  Weight: 13 kg

DRUGS (2)
  1. NAGLAZYME [Suspect]
     Indication: MUCOPOLYSACCHARIDOSIS VI
     Dosage: 1 MG/KG; QW; IV
     Route: 042
     Dates: start: 20070611, end: 20070828
  2. BENADRYL [Concomitant]

REACTIONS (6)
  - ABDOMINAL PAIN [None]
  - APNOEA [None]
  - BRADYCARDIA [None]
  - CHOKING [None]
  - DYSPNOEA [None]
  - PYREXIA [None]
